FAERS Safety Report 7796091-0 (Version None)
Quarter: 2011Q4

REPORT INFORMATION
  Report Type: 
  Country: None (occurrence: None)
  Receive Date: 20111004
  Receipt Date: 20110919
  Transmission Date: 20120403
  Serious: Yes (Death, Hospitalization)
  Sender: FDA-Public Use
  Company Number: JP-WATSON-2011-15562

PATIENT
  Age: 62 Year
  Sex: Female

DRUGS (3)
  1. PREDNISOLONE [Suspect]
     Dosage: 45 MG, DAILY
  2. METHYLPREDNISOLONE [Suspect]
     Indication: GLOMERULONEPHRITIS RAPIDLY PROGRESSIVE
     Dosage: 0.5 G, DAILY
  3. PREDNISOLONE [Suspect]
     Indication: ARTHRALGIA
     Dosage: 30 MG, DAILY

REACTIONS (9)
  - GOODPASTURE'S SYNDROME [None]
  - DEVICE RELATED INFECTION [None]
  - SUICIDAL BEHAVIOUR [None]
  - THROMBOTIC MICROANGIOPATHY [None]
  - ASPERGILLOSIS [None]
  - GLOMERULONEPHRITIS RAPIDLY PROGRESSIVE [None]
  - PULMONARY HAEMORRHAGE [None]
  - CYTOMEGALOVIRUS DUODENITIS [None]
  - PNEUMOCYSTIS JIROVECI PNEUMONIA [None]
